FAERS Safety Report 19206700 (Version 9)
Quarter: 2021Q3

REPORT INFORMATION
  Report Type: Report from Study
  Country: CA (occurrence: CA)
  Receive Date: 20210430
  Receipt Date: 20210830
  Transmission Date: 20211014
  Serious: Yes (Other)
  Sender: FDA-Public Use
  Company Number: CA-BRISTOL-MYERS SQUIBB COMPANY-BMS-2021-005339

PATIENT
  Age: 68 Year
  Sex: Male
  Weight: 83 kg

DRUGS (18)
  1. NIVOLUMAB [Suspect]
     Active Substance: NIVOLUMAB
     Indication: BIPHASIC MESOTHELIOMA
     Dosage: 1 MILLIGRAM, Q3WK
     Route: 065
  2. NIVOLUMAB [Suspect]
     Active Substance: NIVOLUMAB
     Dosage: 300 MILLIGRAM, Q2WK
     Route: 042
  3. NIVOLUMAB [Suspect]
     Active Substance: NIVOLUMAB
     Dosage: 3 MILLIGRAM/KILOGRAM
     Route: 065
     Dates: end: 20210721
  4. YERVOY [Suspect]
     Active Substance: IPILIMUMAB
     Indication: BIPHASIC MESOTHELIOMA
     Dosage: 1 MILLIGRAM, Q3WK
     Route: 065
     Dates: start: 20210118
  5. NIVOLUMAB [Suspect]
     Active Substance: NIVOLUMAB
     Dosage: 265 MILLIGRAM, Q2WK
     Route: 042
     Dates: start: 20210525
  6. YERVOY [Suspect]
     Active Substance: IPILIMUMAB
     Indication: PLEURAL MESOTHELIOMA
     Dosage: 88 MILLIGRAM, Q6WK
     Route: 042
     Dates: start: 20210118
  7. NIVOLUMAB [Suspect]
     Active Substance: NIVOLUMAB
     Dosage: 265 MILLIGRAM, Q3WK
     Route: 042
  8. YERVOY [Suspect]
     Active Substance: IPILIMUMAB
     Dosage: 1 MILLIGRAM/KILOGRAM, Q6WK
     Route: 065
     Dates: end: 20210721
  9. VITAMINE D [Concomitant]
     Active Substance: CHOLECALCIFEROL
     Indication: PRODUCT USED FOR UNKNOWN INDICATION
     Dosage: UNK
     Route: 065
  10. RHINARIS [SODIUM CHLORIDE] [Concomitant]
     Indication: PRODUCT USED FOR UNKNOWN INDICATION
     Dosage: UNK
     Route: 065
  11. CRESTOR [Concomitant]
     Active Substance: ROSUVASTATIN CALCIUM
     Indication: PRODUCT USED FOR UNKNOWN INDICATION
     Dosage: UNK
     Route: 065
  12. LOSARTAN. [Concomitant]
     Active Substance: LOSARTAN
     Indication: PRODUCT USED FOR UNKNOWN INDICATION
     Dosage: UNK
     Route: 065
  13. NIVOLUMAB [Suspect]
     Active Substance: NIVOLUMAB
     Dosage: 88.3 MILLIGRAM, Q2WK
     Route: 042
  14. NIVOLUMAB [Suspect]
     Active Substance: NIVOLUMAB
     Dosage: 560 MILLIGRAM, Q2WK
     Route: 042
  15. AVAMYS [Concomitant]
     Active Substance: FLUTICASONE FUROATE
     Indication: PRODUCT USED FOR UNKNOWN INDICATION
     Dosage: UNK
     Route: 065
  16. NOZIL [Concomitant]
     Indication: PRODUCT USED FOR UNKNOWN INDICATION
     Dosage: UNK
     Route: 065
  17. NIVOLUMAB [Suspect]
     Active Substance: NIVOLUMAB
     Indication: PLEURAL MESOTHELIOMA
     Dosage: 265 MILLIGRAM, Q2WK
     Route: 042
     Dates: start: 20210118
  18. YERVOY [Suspect]
     Active Substance: IPILIMUMAB
     Dosage: 88 MILLIGRAM, Q6WK
     Route: 042
     Dates: start: 20210525

REACTIONS (22)
  - Fluid overload [Unknown]
  - Muscular weakness [Not Recovered/Not Resolved]
  - Discomfort [Unknown]
  - Frequent bowel movements [Unknown]
  - Rash [Recovered/Resolved]
  - Dysgeusia [Not Recovered/Not Resolved]
  - Taste disorder [Unknown]
  - Sleep disorder [Unknown]
  - Fatigue [Recovering/Resolving]
  - Increased appetite [Unknown]
  - Breast discomfort [Unknown]
  - Weight decreased [Not Recovered/Not Resolved]
  - Pollakiuria [Unknown]
  - Intentional product use issue [Unknown]
  - Cough [Not Recovered/Not Resolved]
  - Pulmonary oedema [Unknown]
  - Malignant neoplasm progression [Not Recovered/Not Resolved]
  - Night sweats [Not Recovered/Not Resolved]
  - Pruritus [Recovering/Resolving]
  - Hyperhidrosis [Unknown]
  - Dyspnoea [Not Recovered/Not Resolved]
  - Muscle atrophy [Unknown]

NARRATIVE: CASE EVENT DATE: 20210118
